FAERS Safety Report 8140429-1 (Version None)
Quarter: 2012Q1

REPORT INFORMATION
  Report Type: 
  Country: None (occurrence: None)
  Receive Date: 20120216
  Receipt Date: 20120208
  Transmission Date: 20120608
  Serious: Yes (Death, Hospitalization)
  Sender: FDA-Public Use
  Company Number: NZ-CELGENEUS-118-20785-11110243

PATIENT
  Sex: Male

DRUGS (14)
  1. QUINAPRIL [Concomitant]
     Route: 065
  2. THALIDOMIDE [Suspect]
     Dosage: 50 MILLIGRAM
     Route: 048
     Dates: start: 20110301
  3. ALLOPURINOL [Concomitant]
     Route: 065
  4. SPAN K [Concomitant]
     Route: 065
  5. EPINEPHRINE [Concomitant]
     Dates: start: 20110902
  6. BINIFIBRATE [Concomitant]
     Route: 065
  7. METOCLOPRAMIDE [Concomitant]
     Route: 065
  8. TERBUTALINE [Concomitant]
     Route: 065
  9. TRANEXAMIC ACID [Concomitant]
     Route: 065
  10. TEGRETOL [Concomitant]
     Route: 065
  11. OMEPRAZOLE [Concomitant]
     Route: 065
  12. ZOPICLONE [Concomitant]
     Route: 065
  13. THALIDOMIDE [Suspect]
     Route: 048
     Dates: end: 20110927
  14. FUROSEMIDE [Concomitant]
     Route: 065

REACTIONS (1)
  - GASTRIC PERFORATION [None]
